FAERS Safety Report 23339134 (Version 3)
Quarter: 2024Q2

REPORT INFORMATION
  Report Type: Spontaneous
  Country: US (occurrence: US)
  Receive Date: 20231226
  Receipt Date: 20240521
  Transmission Date: 20240716
  Serious: No
  Sender: FDA-Public Use
  Company Number: US-002147023-NVSC2023US273694

PATIENT
  Age: 70 Year
  Sex: Female
  Weight: 73.016 kg

DRUGS (1)
  1. NETSPOT [Suspect]
     Active Substance: DOTATATE GALLIUM GA-68
     Indication: Carcinoid tumour of the stomach
     Dosage: 214.6 MBQ, ONCE/SINGLE (SOLUTION FOR INJECTION)
     Route: 042
     Dates: start: 20231220, end: 20231220

REACTIONS (1)
  - Abdominal pain [Not Recovered/Not Resolved]

NARRATIVE: CASE EVENT DATE: 20231220
